FAERS Safety Report 6165048-8 (Version None)
Quarter: 2009Q2

REPORT INFORMATION
  Report Type: 
  Country: None (occurrence: None)
  Receive Date: 20090423
  Receipt Date: 20090417
  Transmission Date: 20091009
  Serious: Yes (Other)
  Sender: FDA-Public Use
  Company Number: US-BAYER-200913536NA

PATIENT
  Age: 54 Year
  Sex: Male

DRUGS (3)
  1. LEUKINE [Suspect]
     Indication: MALIGNANT MELANOMA
     Dosage: TOTAL DAILY DOSE: 250 ?G
     Route: 058
     Dates: start: 20070401, end: 20081101
  2. LEUKINE [Suspect]
     Dosage: TOTAL DAILY DOSE: 250 ?G
     Route: 058
     Dates: start: 20081101, end: 20090101
  3. LEUKINE [Suspect]
     Dosage: TOTAL DAILY DOSE: 250 ?G
     Route: 058
     Dates: start: 20090101

REACTIONS (7)
  - FATIGUE [None]
  - INJECTION SITE ERYTHEMA [None]
  - INJECTION SITE PRURITUS [None]
  - MELANOMA RECURRENT [None]
  - METASTASES TO LYMPH NODES [None]
  - MOUTH ULCERATION [None]
  - MUCOSAL INFLAMMATION [None]
